FAERS Safety Report 6292921-2 (Version None)
Quarter: 2009Q3

REPORT INFORMATION
  Report Type: 
  Country: None (occurrence: None)
  Receive Date: 20090731
  Receipt Date: 20090723
  Transmission Date: 20100115
  Serious: Yes (Other)
  Sender: FDA-Public Use
  Company Number: JP-ALLERGAN-0910616US

PATIENT
  Age: 58 Year
  Sex: Female

DRUGS (6)
  1. MIROL [Suspect]
     Indication: GLAUCOMA
     Dosage: 0.1 ML, UNKNOWN
     Route: 047
     Dates: start: 20041201, end: 20090401
  2. MIROL [Suspect]
     Dosage: 0.1 ML, UNKNOWN
     Route: 047
     Dates: start: 20090617, end: 20090630
  3. XALATAN [Suspect]
     Indication: GLAUCOMA
     Dosage: 0.1 ML, UNK
     Route: 047
     Dates: start: 20040623, end: 20090401
  4. XALATAN [Suspect]
     Dosage: 0.1 ML, UNK
     Route: 047
     Dates: start: 20090617
  5. SANCOBA [Suspect]
     Indication: GLAUCOMA
     Dosage: 0.2 - 0.3 ML
     Route: 047
     Dates: start: 20041006, end: 20090401
  6. SANCOBA [Suspect]
     Dosage: 0.2 - 0.3 ML
     Route: 047
     Dates: start: 20090617

REACTIONS (1)
  - DERMATITIS CONTACT [None]
